FAERS Safety Report 13530280 (Version 1)
Quarter: 2017Q2

REPORT INFORMATION
  Report Type: Spontaneous
  Country: US (occurrence: US)
  Receive Date: 20170509
  Receipt Date: 20170509
  Transmission Date: 20170830
  Serious: No
  Sender: FDA-Public Use
  Company Number: US-UCBSA-2016024221

PATIENT
  Sex: Female
  Weight: 153 kg

DRUGS (11)
  1. DOXYCYCLINE HYCLATE. [Concomitant]
     Active Substance: DOXYCYCLINE HYCLATE
     Indication: SKIN DISORDER
     Dosage: 100 MG, UNK
  2. SIMVASTATIN. [Concomitant]
     Active Substance: SIMVASTATIN
     Indication: BLOOD CHOLESTEROL
     Dosage: 20 MG, 1 PILL ONCE DAILY
     Route: 048
     Dates: start: 201603
  3. LEVOTHYROXINE. [Concomitant]
     Active Substance: LEVOTHYROXINE
     Indication: THYROID DISORDER
     Dosage: 112 MG, ONCE DAILY (QD)
     Route: 048
  4. VITAMIN D [Concomitant]
     Active Substance: CHOLECALCIFEROL
     Indication: PRODUCT USED FOR UNKNOWN INDICATION
  5. ROPINIROLE. [Concomitant]
     Active Substance: ROPINIROLE
     Indication: DIABETES MELLITUS
     Dosage: 0.25 MG, 1 PILL 3 TIMES A DAY
     Route: 048
  6. MULTIVITAMIN [Concomitant]
     Active Substance: VITAMINS
     Indication: PRODUCT USED FOR UNKNOWN INDICATION
  7. HYDROCORTISONE. [Concomitant]
     Active Substance: HYDROCORTISONE
     Indication: SKIN DISORDER
  8. GLIPIZIDE. [Concomitant]
     Active Substance: GLIPIZIDE
     Indication: DIABETES MELLITUS
     Dosage: 5 MG, ONCE DAILY (QD)
     Route: 048
  9. NEUPRO [Suspect]
     Active Substance: ROTIGOTINE
     Indication: PARKINSON^S DISEASE
     Dosage: 4 MG, ONCE DAILY (QD)
  10. NEUPRO [Suspect]
     Active Substance: ROTIGOTINE
     Dosage: 4 MG, ONCE DAILY (QD)
     Dates: start: 2016
  11. CARBIDOPA W/LEVODOPA [Concomitant]
     Active Substance: CARBIDOPA\LEVODOPA
     Indication: PARKINSON^S DISEASE
     Dosage: UNK, 3X/DAY (TID), 25-100MG, TWO AND HALF PILLS A DAY. 1 AM, 1/2 NOON AND 1 PM
     Route: 048
     Dates: start: 201203

REACTIONS (8)
  - Hypoaesthesia [Not Recovered/Not Resolved]
  - Application site vesicles [Not Recovered/Not Resolved]
  - Malaise [Unknown]
  - Abdominal discomfort [Unknown]
  - Application site erythema [Recovering/Resolving]
  - Nausea [Unknown]
  - Drug administered at inappropriate site [Unknown]
  - Wrong technique in product usage process [Unknown]

NARRATIVE: CASE EVENT DATE: 2016
